FAERS Safety Report 21583510 (Version 1)
Quarter: 2022Q4

REPORT INFORMATION
  Report Type: Spontaneous
  Country: DE (occurrence: DE)
  Receive Date: 20221111
  Receipt Date: 20221111
  Transmission Date: 20230112
  Serious: Yes (Hospitalization)
  Sender: FDA-Public Use
  Company Number: DE-ADRED-07932-02

PATIENT
  Age: 82 Year
  Sex: Male

DRUGS (11)
  1. BISOPROLOL [Suspect]
     Active Substance: BISOPROLOL
     Indication: Product used for unknown indication
     Dosage: 5 MG, 1-0-1-0
     Route: 065
  2. INDAPAMIDE [Concomitant]
     Active Substance: INDAPAMIDE
     Dosage: 1.5 MG, 1-0-0-0
     Route: 065
  3. CANDESARTAN [Concomitant]
     Active Substance: CANDESARTAN
     Dosage: 16 MG, 1-0-1-0
     Route: 065
  4. DUTASTERIDE\TAMSULOSIN HYDROCHLORIDE [Concomitant]
     Active Substance: DUTASTERIDE\TAMSULOSIN HYDROCHLORIDE
     Dosage: 0.5|0.4 MG, 0-0-1-0
     Route: 065
  5. DOXAZOSIN [Concomitant]
     Active Substance: DOXAZOSIN MESYLATE
     Dosage: 2 MG, 1-0-1-0
     Route: 065
  6. AMLODIPINE BESYLATE [Concomitant]
     Active Substance: AMLODIPINE BESYLATE
     Dosage: 5 MG, 1-0-1-0
     Route: 065
  7. POTASSIUM CHLORIDE [Concomitant]
     Active Substance: POTASSIUM CHLORIDE
     Dosage: 2-2-0-0
     Route: 065
  8. PRAVASTATIN [Concomitant]
     Active Substance: PRAVASTATIN
     Dosage: 30 MG, 0-0-1-0
     Route: 065
  9. APIXABAN [Concomitant]
     Active Substance: APIXABAN
     Dosage: 5 MG, 1-0-1-0
     Route: 065
  10. TORSEMIDE [Concomitant]
     Active Substance: TORSEMIDE
     Dosage: 20 MG, 1-0-0-0
     Route: 065
  11. GLYCOPYRROLATE\INDACATEROL MALEATE [Concomitant]
     Active Substance: GLYCOPYRROLATE\INDACATEROL MALEATE
     Dosage: 1-0-0-0

REACTIONS (10)
  - Chills [Unknown]
  - General physical health deterioration [Unknown]
  - Anaemia [Unknown]
  - Acute respiratory failure [Unknown]
  - Condition aggravated [Unknown]
  - Pyrexia [Unknown]
  - Dyspnoea [Unknown]
  - Tachypnoea [Unknown]
  - Depressed level of consciousness [Unknown]
  - Systemic infection [Unknown]
